FAERS Safety Report 20053528 (Version 2)
Quarter: 2022Q2

REPORT INFORMATION
  Report Type: Report from Study
  Country: CA (occurrence: CA)
  Receive Date: 20211110
  Receipt Date: 20220513
  Transmission Date: 20220721
  Serious: Yes (Hospitalization, Other)
  Sender: FDA-Public Use
  Company Number: CA-TAKEDA-2019TUS066206

PATIENT
  Age: 62 Year
  Sex: Female

DRUGS (6)
  1. IXAZOMIB [Suspect]
     Active Substance: IXAZOMIB
     Indication: Plasma cell myeloma
     Dosage: 4 MILLIGRAM
     Route: 048
     Dates: start: 20181221
  2. IXAZOMIB [Suspect]
     Active Substance: IXAZOMIB
     Dosage: 3 MILLIGRAM
     Route: 048
     Dates: start: 20200910, end: 20220425
  3. IXAZOMIB [Suspect]
     Active Substance: IXAZOMIB
     Dosage: 4 MILLIGRAM
     Route: 048
     Dates: start: 20220509
  4. ONDANSETRON [Concomitant]
     Active Substance: ONDANSETRON
     Dosage: 8 MILLIGRAM, BID
     Route: 065
  5. ACYCLOVIR                          /00587301/ [Concomitant]
     Dosage: 400 MILLIGRAM, BID
     Route: 065
  6. FLORINEF ACETATE [Concomitant]
     Active Substance: FLUDROCORTISONE ACETATE
     Dosage: 0.1 MILLIGRAM
     Route: 065

REACTIONS (17)
  - COVID-19 pneumonia [Recovered/Resolved]
  - Thrombocytopenia [Unknown]
  - Stomatitis [Recovering/Resolving]
  - Light chain analysis increased [Unknown]
  - Subcutaneous abscess [Unknown]
  - Hyperhidrosis [Unknown]
  - Flushing [Unknown]
  - Erythema [Recovered/Resolved]
  - Burning sensation [Recovered/Resolved]
  - Rosacea [Unknown]
  - Contusion [Recovered/Resolved]
  - Rash papular [Unknown]
  - Rash pruritic [Unknown]
  - Rash [Unknown]
  - Rash macular [Recovering/Resolving]
  - Paraesthesia [Unknown]
  - Nausea [Unknown]

NARRATIVE: CASE EVENT DATE: 20200609
